FAERS Safety Report 12880955 (Version 1)
Quarter: 2016Q4

REPORT INFORMATION
  Report Type: Spontaneous
  Country: US (occurrence: US)
  Receive Date: 20161024
  Receipt Date: 20161024
  Transmission Date: 20170207
  Serious: No
  Sender: FDA-Public Use
  Company Number: None

PATIENT
  Age: 56 Year
  Sex: Male
  Weight: 90 kg

DRUGS (1)
  1. HYOSCYAMINE. [Suspect]
     Active Substance: HYOSCYAMINE
     Indication: GALLBLADDER DISORDER
     Dosage: ?          QUANTITY:90 TABLET(S);?
     Route: 060
     Dates: start: 20160607, end: 20160612

REACTIONS (2)
  - Abdominal pain upper [None]
  - Malaise [None]

NARRATIVE: CASE EVENT DATE: 20160607
